FAERS Safety Report 9559867 (Version 1)
Quarter: 2013Q3

REPORT INFORMATION
  Report Type: Spontaneous
  Country: US (occurrence: US)
  Receive Date: 20130927
  Receipt Date: 20130927
  Transmission Date: 20140515
  Serious: Yes (Other)
  Sender: FDA-Public Use
  Company Number: US-JNJFOC-20130910733

PATIENT
  Sex: Male
  Weight: 72.58 kg

DRUGS (9)
  1. ZYTIGA [Suspect]
     Indication: PROSTATE CANCER
     Dosage: STRENGTH WAS 250 MG
     Route: 048
     Dates: start: 2013
  2. PREDNISONE [Suspect]
     Indication: PLATELET COUNT DECREASED
     Route: 065
     Dates: start: 2013, end: 2013
  3. PREDNISONE [Suspect]
     Indication: PLATELET COUNT DECREASED
     Route: 065
     Dates: start: 2013
  4. PREDNISONE [Suspect]
     Indication: PLATELET COUNT DECREASED
     Route: 065
  5. PREDNISONE [Suspect]
     Indication: PLATELET COUNT DECREASED
     Route: 065
     Dates: start: 2013, end: 2013
  6. DOXYCYCLINE [Suspect]
     Indication: LYME DISEASE
     Route: 065
     Dates: start: 2013
  7. CIPRO [Suspect]
     Indication: LYME DISEASE
     Route: 065
     Dates: start: 2013
  8. LUPRON [Concomitant]
     Indication: PROSTATE CANCER
     Route: 065
  9. VITAMIN [Concomitant]
     Indication: PRODUCT USED FOR UNKNOWN INDICATION
     Route: 065

REACTIONS (8)
  - Platelet count decreased [Recovering/Resolving]
  - Urinary tract infection [Unknown]
  - Lyme disease [Unknown]
  - Anaemia [Unknown]
  - Prostatic specific antigen increased [Not Recovered/Not Resolved]
  - Polyp [Not Recovered/Not Resolved]
  - Dizziness [Recovered/Resolved]
  - Oropharyngeal pain [Recovered/Resolved]
